FAERS Safety Report 25747751 (Version 2)
Quarter: 2025Q3

REPORT INFORMATION
  Report Type: Spontaneous
  Country: AM (occurrence: AM)
  Receive Date: 20250901
  Receipt Date: 20250908
  Transmission Date: 20251021
  Serious: Yes (Other)
  Sender: TAKEDA
  Company Number: AM-TAKEDA-2025TUS075074

PATIENT
  Age: 38 Year
  Sex: Male

DRUGS (2)
  1. COLCHICINE [Suspect]
     Active Substance: COLCHICINE
     Indication: Familial mediterranean fever
  2. CLARITHROMYCIN [Suspect]
     Active Substance: CLARITHROMYCIN
     Indication: Familial mediterranean fever

REACTIONS (2)
  - Drug-induced liver injury [Recovering/Resolving]
  - Rhabdomyolysis [Recovering/Resolving]
